FAERS Safety Report 19298434 (Version 2)
Quarter: 2022Q1

REPORT INFORMATION
  Report Type: Spontaneous
  Country: IT (occurrence: IT)
  Receive Date: 20210525
  Receipt Date: 20220315
  Transmission Date: 20220423
  Serious: Yes (Other)
  Sender: FDA-Public Use
  Company Number: IT-CELLTRION INC.-2021IT006935

PATIENT

DRUGS (1)
  1. INFLIXIMAB [Suspect]
     Active Substance: INFLIXIMAB
     Indication: Colitis ulcerative
     Dosage: 5 MG/KG (2 AND 6 WEEKS AFTER THE FIRST INFUSION THEN EVERY 8 WEEKS)
     Route: 042

REACTIONS (1)
  - Colectomy [Unknown]
